FAERS Safety Report 4653270-9 (Version None)
Quarter: 2005Q2

REPORT INFORMATION
  Report Type: 
  Country: None (occurrence: None)
  Receive Date: 20050505
  Receipt Date: 20041004
  Transmission Date: 20051028
  Serious: Yes (Hospitalization)
  Sender: FDA-Public Use
  Company Number: US-2004-BP-09241BP

PATIENT
  Sex: Male

DRUGS (4)
  1. AGGRENOX [Suspect]
     Indication: CEREBROVASCULAR ACCIDENT PROPHYLAXIS
     Route: 048
     Dates: start: 20020522
  2. AGGRENOX [Suspect]
     Indication: TRANSIENT ISCHAEMIC ATTACK
  3. FLOMAX [Suspect]
     Dates: start: 19970101
  4. CELEBREX [Concomitant]

REACTIONS (15)
  - AGGRESSION [None]
  - CALCULUS BLADDER [None]
  - CATARACT OPERATION [None]
  - CONFUSIONAL STATE [None]
  - DEMENTIA [None]
  - FALL [None]
  - GAIT DISTURBANCE [None]
  - HERNIA [None]
  - KNEE OPERATION [None]
  - PARANOIA [None]
  - PARKINSONISM [None]
  - PATELLA FRACTURE [None]
  - SPEECH DISORDER [None]
  - STAPHYLOCOCCAL INFECTION [None]
  - TRANSIENT ISCHAEMIC ATTACK [None]
